FAERS Safety Report 21167874 (Version 1)
Quarter: 2022Q3

REPORT INFORMATION
  Report Type: Spontaneous
  Country: US (occurrence: US)
  Receive Date: 20220803
  Receipt Date: 20220803
  Transmission Date: 20221027
  Serious: No
  Sender: FDA-Public Use
  Company Number: US-BRISTOL-MYERS SQUIBB COMPANY-2022-084470

PATIENT
  Age: 79 Year
  Sex: Male

DRUGS (1)
  1. REVLIMID [Suspect]
     Active Substance: LENALIDOMIDE
     Indication: Carcinoid tumour
     Dosage: TAKE 1 CAPSULE BY MOUTH DAILY FOR 28 DAYS
     Route: 048
     Dates: start: 20220414

REACTIONS (2)
  - Diarrhoea [Unknown]
  - Fatigue [Unknown]
